FAERS Safety Report 24883678 (Version 1)
Quarter: 2025Q1

REPORT INFORMATION
  Report Type: Spontaneous
  Country: US (occurrence: None)
  Receive Date: 20250124
  Receipt Date: 20250124
  Transmission Date: 20250408
  Serious: Yes (unspecified)
  Sender: FDA-CTU
  Company Number: None

PATIENT
  Age: 59 Year
  Sex: Female

DRUGS (1)
  1. HUMIRA [Suspect]
     Active Substance: ADALIMUMAB
     Indication: Hidradenitis
     Dosage: 40MG QW ?

REACTIONS (4)
  - Intentional dose omission [None]
  - Tibia fracture [None]
  - Stress [None]
  - Skin disorder [None]

NARRATIVE: CASE EVENT DATE: 20241224
